FAERS Safety Report 15647742 (Version 1)
Quarter: 2018Q4

REPORT INFORMATION
  Report Type: Spontaneous
  Country: TR (occurrence: TR)
  Receive Date: 20181122
  Receipt Date: 20181122
  Transmission Date: 20190205
  Serious: Yes (Other)
  Sender: FDA-Public Use
  Company Number: TR-SUN PHARMACEUTICAL INDUSTRIES LTD-2018RR-191751

PATIENT
  Age: 45 Year
  Sex: Female

DRUGS (15)
  1. CISPLATIN. [Suspect]
     Active Substance: CISPLATIN
     Dosage: THREE CYCLES
     Route: 065
  2. CISPLATIN. [Suspect]
     Active Substance: CISPLATIN
     Dosage: AS 4TH LINE CHEMOTHERAPY, FOR TWO CYCLES
     Route: 065
  3. CISPLATIN. [Suspect]
     Active Substance: CISPLATIN
     Indication: HUMAN CHORIONIC GONADOTROPIN INCREASED
     Dosage: THIRD-LINE TREATMENT
     Route: 065
  4. PACLITAXEL. [Suspect]
     Active Substance: PACLITAXEL
     Indication: VAGINAL CANCER
     Dosage: 4 CYCLES
     Route: 065
  5. ETOPOSIDE. [Suspect]
     Active Substance: ETOPOSIDE
     Indication: HUMAN CHORIONIC GONADOTROPIN INCREASED
     Dosage: THIRD-LINE TREATMENT
     Route: 065
  6. METHOTREXATE. [Suspect]
     Active Substance: METHOTREXATE
     Indication: CHORIOCARCINOMA
     Dosage: 8 CYCLES
     Route: 065
  7. VINCRISTINE [Suspect]
     Active Substance: VINCRISTINE
     Indication: CHORIOCARCINOMA
     Dosage: 8 CYCLES
     Route: 065
  8. ETOPOSIDE. [Suspect]
     Active Substance: ETOPOSIDE
     Dosage: THREE CYCLES
     Route: 065
  9. CARBOPLATIN. [Suspect]
     Active Substance: CARBOPLATIN
     Indication: VAGINAL CANCER
     Dosage: 4 CYCLES
     Route: 065
  10. ACTINOMYCIN D [Suspect]
     Active Substance: DACTINOMYCIN
     Indication: CHORIOCARCINOMA
     Dosage: 8 CYCLES
     Route: 065
  11. IFOSFAMIDE. [Suspect]
     Active Substance: IFOSFAMIDE
     Indication: HUMAN CHORIONIC GONADOTROPIN INCREASED
     Dosage: AS 4TH LINE CHEMOTHERAPY, FOR TWO CYCLES
     Route: 065
  12. PACLITAXEL. [Suspect]
     Active Substance: PACLITAXEL
     Indication: HUMAN CHORIONIC GONADOTROPIN INCREASED
     Dosage: AS 4TH LINE CHEMOTHERAPY, FOR TWO CYCLES
     Route: 065
  13. CYCLOPHOSPHAMIDE. [Suspect]
     Active Substance: CYCLOPHOSPHAMIDE
     Indication: CHORIOCARCINOMA
     Dosage: 8 CYCLES
     Route: 065
  14. ETOPOSIDE. [Suspect]
     Active Substance: ETOPOSIDE
     Indication: CHORIOCARCINOMA
     Dosage: 8 CYCLES
     Route: 065
  15. BLEOMYCIN [Suspect]
     Active Substance: BLEOMYCIN SULFATE
     Indication: HUMAN CHORIONIC GONADOTROPIN INCREASED
     Dosage: THIRD-LINE TREATMENT
     Route: 065

REACTIONS (3)
  - Refractory cancer [Unknown]
  - Disease recurrence [Unknown]
  - Drug ineffective [Unknown]
